FAERS Safety Report 14647040 (Version 1)
Quarter: 2018Q1

REPORT INFORMATION
  Report Type: Spontaneous
  Country: GB (occurrence: GB)
  Receive Date: 20180316
  Receipt Date: 20180316
  Transmission Date: 20180509
  Serious: Yes (Other)
  Sender: FDA-Public Use
  Company Number: GB-AMGEN-GBRSP2018035920

PATIENT
  Sex: Female

DRUGS (2)
  1. IMLYGIC [Suspect]
     Active Substance: TALIMOGENE LAHERPAREPVEC
     Indication: MALIGNANT MELANOMA
     Dosage: 3.6 ML (1 MILLION PFU PER ML), UNK
     Route: 026
     Dates: start: 20171102, end: 20171102
  2. IMLYGIC [Suspect]
     Active Substance: TALIMOGENE LAHERPAREPVEC
     Dosage: 0.4 ML (100 MILLION PFU), UNK
     Route: 026
     Dates: start: 20171221, end: 20171221

REACTIONS (1)
  - Melanoma recurrent [Not Recovered/Not Resolved]

NARRATIVE: CASE EVENT DATE: 201803
